FAERS Safety Report 10744109 (Version 1)
Quarter: 2015Q1

REPORT INFORMATION
  Report Type: Spontaneous
  Country: GB (occurrence: None)
  Receive Date: 20150126
  Receipt Date: 20150126
  Transmission Date: 20150721
  Serious: Yes (Hospitalization)
  Sender: FDA-Public Use
  Company Number: 2015GB0020

PATIENT
  Age: 5 Month
  Sex: Male

DRUGS (1)
  1. NITISINONE (NITISINONE) [Suspect]
     Active Substance: NITISINONE

REACTIONS (4)
  - Disease progression [None]
  - No therapeutic response [None]
  - Liver transplant [None]
  - Liver disorder [None]
